FAERS Safety Report 19906022 (Version 1)
Quarter: 2021Q4

REPORT INFORMATION
  Report Type: Spontaneous
  Country: US (occurrence: US)
  Receive Date: 20211001
  Receipt Date: 20211001
  Transmission Date: 20220304
  Serious: No
  Sender: FDA-Public Use
  Company Number: 2021A732974

PATIENT
  Age: 77 Year
  Sex: Female
  Weight: 79.4 kg

DRUGS (1)
  1. BREZTRI [Suspect]
     Active Substance: BUDESONIDE\FORMOTEROL\GLYCOPYRROLATE
     Indication: Chronic obstructive pulmonary disease
     Dosage: 60MCG/9MCG/4.8MCG
     Route: 055

REACTIONS (6)
  - Speech disorder [Recovering/Resolving]
  - Choking [Recovering/Resolving]
  - Feeling abnormal [Recovering/Resolving]
  - Cough [Not Recovered/Not Resolved]
  - Device use issue [Not Recovered/Not Resolved]
  - Product label confusion [Not Recovered/Not Resolved]

NARRATIVE: CASE EVENT DATE: 20210901
